FAERS Safety Report 24557088 (Version 1)
Quarter: 2024Q4

REPORT INFORMATION
  Report Type: Spontaneous
  Country: FR (occurrence: FR)
  Receive Date: 20241028
  Receipt Date: 20241028
  Transmission Date: 20250115
  Serious: Yes (Hospitalization)
  Sender: AUROBINDO
  Company Number: FR-AFSSAPS-RE2024000962

PATIENT
  Age: 77 Year
  Sex: Female
  Weight: 61 kg

DRUGS (13)
  1. PRAZEPAM [Suspect]
     Active Substance: PRAZEPAM
     Indication: Anxiety
     Dosage: 20 MILLIGRAM, ONCE A DAY
     Route: 048
  2. VENLAFAXINE [Suspect]
     Active Substance: VENLAFAXINE HYDROCHLORIDE
     Indication: Depression
     Dosage: 75 MILLIGRAM, ONCE A DAY
     Route: 048
  3. ZOPICLONE [Suspect]
     Active Substance: ZOPICLONE
     Indication: Insomnia
     Dosage: 7.5 MILLIGRAM, ONCE A DAY
     Route: 048
     Dates: end: 20230629
  4. ALMOTRIPTAN [Suspect]
     Active Substance: ALMOTRIPTAN
     Indication: Migraine
     Dosage: 12.5 MILLIGRAM, AS NECESSARY
     Route: 048
     Dates: end: 20230629
  5. NEFOPAM [Suspect]
     Active Substance: NEFOPAM
     Indication: Pain
     Dosage: UNK UNK, AS NECESSARY
     Route: 030
     Dates: end: 20230703
  6. FENTANYL [Suspect]
     Active Substance: FENTANYL
     Indication: Pain
     Dosage: UNK, NOT SPECIFIED
     Route: 062
     Dates: end: 20230629
  7. TEGRETOL [Suspect]
     Active Substance: CARBAMAZEPINE
     Indication: Trigeminal neuralgia
     Dosage: 600 MILLIGRAM, ONCE A DAY
     Route: 048
  8. CLOPIDOGREL BESILATE [Concomitant]
     Active Substance: CLOPIDOGREL BESILATE
     Indication: Product used for unknown indication
     Dosage: UNK
     Route: 065
  9. ENALAPRIL MALEATE [Concomitant]
     Active Substance: ENALAPRIL MALEATE
     Indication: Product used for unknown indication
     Dosage: UNK
     Route: 065
  10. INDAPAMIDE [Concomitant]
     Active Substance: INDAPAMIDE
     Indication: Product used for unknown indication
     Dosage: UNK
     Route: 065
  11. LERCANIDIPINE HYDROCHLORIDE [Concomitant]
     Active Substance: LERCANIDIPINE HYDROCHLORIDE
     Indication: Product used for unknown indication
     Dosage: UNK
     Route: 065
  12. PANTOPRAZOLE [Concomitant]
     Active Substance: PANTOPRAZOLE
     Indication: Product used for unknown indication
     Dosage: UNK
  13. ACETAMINOPHEN [Concomitant]
     Active Substance: ACETAMINOPHEN
     Indication: Product used for unknown indication
     Dosage: UNK
     Route: 065

REACTIONS (3)
  - Disorientation [Recovered/Resolved]
  - Disturbance in attention [Recovered/Resolved]
  - Somnolence [Recovered/Resolved]

NARRATIVE: CASE EVENT DATE: 20230616
